FAERS Safety Report 8196141-6 (Version None)
Quarter: 2012Q1

REPORT INFORMATION
  Report Type: 
  Country: None (occurrence: None)
  Receive Date: 20120223
  Receipt Date: 20111209
  Transmission Date: 20120608
  Serious: Yes (Other)
  Sender: FDA-Public Use
  Company Number: WAES 1112USA01259

PATIENT
  Age: 57 Year
  Sex: Female
  Weight: 68.0396 kg

DRUGS (5)
  1. LYRICA [Concomitant]
  2. GLIPIZIDE [Concomitant]
  3. INSULIN [Concomitant]
  4. ZOCOR [Suspect]
     Indication: BLOOD CHOLESTEROL INCREASED
     Dosage: UNK/UNK/PO
     Route: 048
     Dates: start: 20081201
  5. METFORMIN HCL [Concomitant]

REACTIONS (1)
  - ARTHRALGIA [None]
